FAERS Safety Report 24133748 (Version 2)
Quarter: 2024Q3

REPORT INFORMATION
  Report Type: Spontaneous
  Country: US (occurrence: US)
  Receive Date: 20240724
  Receipt Date: 20240918
  Transmission Date: 20241017
  Serious: No
  Sender: ABBVIE
  Company Number: US-ABBVIE-5845879

PATIENT
  Age: 53 Year
  Sex: Female
  Weight: 168 kg

DRUGS (2)
  1. HUMIRA [Suspect]
     Active Substance: ADALIMUMAB
     Indication: Colitis ulcerative
     Route: 058
  2. HUMIRA [Suspect]
     Active Substance: ADALIMUMAB
     Indication: Arthritis enteropathic

REACTIONS (2)
  - Product dispensing error [Unknown]
  - Product storage error [Unknown]

NARRATIVE: CASE EVENT DATE: 20240701
